FAERS Safety Report 16583001 (Version 1)
Quarter: 2019Q3

REPORT INFORMATION
  Report Type: Spontaneous
  Country: US (occurrence: US)
  Receive Date: 20190717
  Receipt Date: 20190717
  Transmission Date: 20191004
  Serious: Yes (Other)
  Sender: FDA-Public Use
  Company Number: US-EMD SERONO-9104482

PATIENT
  Age: 73 Year
  Sex: Female
  Weight: 79 kg

DRUGS (2)
  1. POLY ADP-RIBOSE POLYMERASE INHIBITOR [Concomitant]
     Indication: ENDOMETRIAL CANCER
     Route: 048
     Dates: start: 20190611
  2. AVELUMAB [Suspect]
     Active Substance: AVELUMAB
     Indication: ENDOMETRIAL CANCER
     Route: 042
     Dates: start: 20190611

REACTIONS (2)
  - Sinusitis [Recovered/Resolved]
  - Off label use [Unknown]

NARRATIVE: CASE EVENT DATE: 20190627
